FAERS Safety Report 23794873 (Version 1)
Quarter: 2024Q2

REPORT INFORMATION
  Report Type: Spontaneous
  Country: CH (occurrence: CH)
  Receive Date: 20240429
  Receipt Date: 20240429
  Transmission Date: 20240715
  Serious: Yes (Hospitalization)
  Sender: FDA-Public Use
  Company Number: CH-BAYER-2024A062019

PATIENT
  Age: 56 Year
  Sex: Female

DRUGS (16)
  1. XARELTO [Suspect]
     Active Substance: RIVAROXABAN
     Indication: Product used for unknown indication
     Dosage: 10 MG, QD
     Route: 048
  2. SPRAVATO [Concomitant]
     Active Substance: ESKETAMINE
     Dosage: 56 MG
     Dates: start: 20240106
  3. SPRAVATO [Concomitant]
     Active Substance: ESKETAMINE
     Dosage: 84 MG
     Dates: start: 20240229
  4. SPRAVATO [Concomitant]
     Active Substance: ESKETAMINE
     Dosage: 84 UG
     Dates: start: 20240411
  5. TRAZODONE HYDROCHLORIDE [Concomitant]
     Active Substance: TRAZODONE HYDROCHLORIDE
     Dosage: 100 MG, QD
  6. QUETIAPINE [Concomitant]
     Active Substance: QUETIAPINE
     Dosage: 75 MG, TID
  7. VALSARTAN [Concomitant]
     Active Substance: VALSARTAN
     Dosage: 160 MG, BID
  8. ROSUVASTATIN [Concomitant]
     Active Substance: ROSUVASTATIN
     Dosage: 20 MG, QD
  9. GINKO [GINKGO BILOBA EXTRACT] [Concomitant]
  10. PREGABALIN [Concomitant]
     Active Substance: PREGABALIN
     Dosage: 100 MG, TID
  11. PANTOPRAZOLE SODIUM [Concomitant]
     Active Substance: PANTOPRAZOLE SODIUM
     Dosage: 40 MG
  12. JARDIANCE [Concomitant]
     Active Substance: EMPAGLIFLOZIN
     Dosage: 20 MG, QD
  13. METFORMIN HYDROCHLORIDE\VILDAGLIPTIN [Concomitant]
     Active Substance: METFORMIN HYDROCHLORIDE\VILDAGLIPTIN
  14. GLICLAZIDE [Concomitant]
     Active Substance: GLICLAZIDE
     Dosage: 60 MG, BID
  15. VITAMIN D3 [Concomitant]
     Active Substance: CHOLECALCIFEROL
     Dosage: 8000 U, QD
  16. LYMAN [ALOXIPRIN] [Concomitant]

REACTIONS (3)
  - General physical health deterioration [Unknown]
  - Ataxia [Unknown]
  - Gait disturbance [Recovered/Resolved]
